FAERS Safety Report 16883045 (Version 2)
Quarter: 2019Q4

REPORT INFORMATION
  Report Type: Spontaneous
  Country: US (occurrence: US)
  Receive Date: 20191004
  Receipt Date: 20191010
  Transmission Date: 20200122
  Serious: Yes (Other)
  Sender: FDA-Public Use
  Company Number: US-SA-2019SA194959

PATIENT
  Sex: Female
  Weight: 51.71 kg

DRUGS (1)
  1. PLAVIX [Suspect]
     Active Substance: CLOPIDOGREL BISULFATE
     Dosage: 75 MG, QD
     Route: 048
     Dates: start: 20180627

REACTIONS (7)
  - Haemorrhage [Unknown]
  - Nausea [Unknown]
  - Asthenia [Unknown]
  - Hypocoagulable state [Unknown]
  - Malaise [Unknown]
  - Lung neoplasm malignant [Unknown]
  - Contusion [Not Recovered/Not Resolved]
